FAERS Safety Report 12212132 (Version 2)
Quarter: 2016Q2

REPORT INFORMATION
  Report Type: Report from Study
  Country: US (occurrence: US)
  Receive Date: 20160325
  Receipt Date: 20160412
  Transmission Date: 20160815
  Serious: Yes (Death, Other)
  Sender: FDA-Public Use
  Company Number: US-GILEAD-2016-0205089

PATIENT
  Age: 74 Year
  Sex: Female
  Weight: 57.6 kg

DRUGS (1)
  1. IDELALISIB [Suspect]
     Active Substance: IDELALISIB
     Indication: NON-HODGKIN^S LYMPHOMA UNSPECIFIED HISTOLOGY INDOLENT
     Dosage: 100 MG, BID
     Route: 048
     Dates: start: 20150805, end: 20160315

REACTIONS (3)
  - Sepsis [Fatal]
  - Terminal state [Unknown]
  - Renal failure [Unknown]

NARRATIVE: CASE EVENT DATE: 20160315
